FAERS Safety Report 9224578 (Version 1)
Quarter: 2013Q1

REPORT INFORMATION
  Report Type: Spontaneous
  Country: US (occurrence: None)
  Receive Date: 20120914
  Receipt Date: 20120914
  Transmission Date: 20140127
  Serious: Yes (Other)
  Sender: FDA-Public Use
  Company Number: JPI-P-019743

PATIENT
  Sex: Female
  Weight: 63.5 kg

DRUGS (8)
  1. XYREM(500 MILLIGRAM/MILLILITERS, SOLUTION)(SODIUM OXYBATE) [Suspect]
     Indication: INSOMNIA
     Route: 048
     Dates: start: 20070410
  2. ATORVASTATIN CALCIUM [Suspect]
     Indication: BLOOD CHOLESTEROL INCREASED
     Route: 048
     Dates: start: 201110
  3. LEVOTHYROXINE SODIUM [Concomitant]
  4. FELODIPINE [Concomitant]
  5. HYDROCHLOROTHIAZIDE [Concomitant]
  6. FEXOFENADINE HYDROCHLORIDE [Concomitant]
  7. PRAMIPEXOLE [Concomitant]
  8. FLUOXETINE HYDROCHLORIDE [Concomitant]

REACTIONS (1)
  - Hepatic enzyme increased [None]
